FAERS Safety Report 8936558 (Version 1)
Quarter: 2012Q4

REPORT INFORMATION
  Report Type: 
  Country: US (occurrence: US)
  Receive Date: 20121130
  Receipt Date: 20121130
  Transmission Date: 20130627
  Serious: Yes (Death, Other)
  Sender: FDA-Public Use
  Company Number: US-PFIZER INC-2012297431

PATIENT
  Age: 80 Year
  Sex: Female

DRUGS (1)
  1. REVATIO [Suspect]
     Indication: PRIMARY PULMONARY HYPERTENSION
     Dosage: UNK

REACTIONS (2)
  - Pulmonary hypertension [Fatal]
  - Cardiac failure congestive [Fatal]
